FAERS Safety Report 6495157-5 (Version None)
Quarter: 2009Q4

REPORT INFORMATION
  Report Type: 
  Country: None (occurrence: None)
  Receive Date: 20091214
  Receipt Date: 20090506
  Transmission Date: 20100525
  Serious: No
  Sender: FDA-Public Use
  Company Number: US-BRISTOL-MYERS SQUIBB COMPANY-14615397

PATIENT
  Sex: Female
  Weight: 76 kg

DRUGS (2)
  1. ABILIFY [Suspect]
     Indication: DEPRESSION
     Dosage: THERAPY DURATION: APPROXIMATELY 1 YEAR
  2. PROZAC [Suspect]
     Indication: DEPRESSION
     Dosage: DURATION APPROXIMATELY 1 YEAR

REACTIONS (1)
  - WEIGHT INCREASED [None]
